FAERS Safety Report 21314387 (Version 1)
Quarter: 2022Q3

REPORT INFORMATION
  Report Type: Spontaneous
  Country: US (occurrence: None)
  Receive Date: 20220909
  Receipt Date: 20220909
  Transmission Date: 20221027
  Serious: Yes (Other)
  Sender: FDA-Public Use
  Company Number: None

PATIENT

DRUGS (1)
  1. CHOLESTYRAMINE [Suspect]
     Active Substance: CHOLESTYRAMINE

REACTIONS (3)
  - Aura [None]
  - Dizziness [None]
  - Colitis microscopic [None]

NARRATIVE: CASE EVENT DATE: 20220610
